FAERS Safety Report 9053862 (Version 1)
Quarter: 2013Q1

REPORT INFORMATION
  Report Type: Spontaneous
  Country: US (occurrence: None)
  Receive Date: 20130130
  Receipt Date: 20130130
  Transmission Date: 20140127
  Serious: No
  Sender: FDA-Public Use
  Company Number: None

PATIENT
  Age: 66 Year
  Sex: Female
  Weight: 74.84 kg

DRUGS (1)
  1. FENTANYL [Suspect]
     Indication: OSTEOARTHRITIS
     Dosage: 1PATCH @48 HOURS
     Route: 058
     Dates: start: 20130108, end: 20130208

REACTIONS (2)
  - Product substitution issue [None]
  - Drug ineffective [None]
